FAERS Safety Report 24243758 (Version 1)
Quarter: 2024Q3

REPORT INFORMATION
  Report Type: Spontaneous
  Country: US (occurrence: None)
  Receive Date: 20240823
  Receipt Date: 20240823
  Transmission Date: 20241016
  Serious: Yes (Other)
  Sender: EMMAUS LIFE SCIENCES
  Company Number: US-ARIS GLOBAL-EMM202309-000245

PATIENT
  Age: 17 Year
  Sex: Female
  Weight: 65.77 kg

DRUGS (1)
  1. ENDARI [Suspect]
     Active Substance: GLUTAMINE
     Indication: Thalassaemia sickle cell
     Dosage: 10 G (TWO PACKETS)
     Route: 048
     Dates: start: 202302

REACTIONS (1)
  - Sickle cell anaemia with crisis [Recovered/Resolved]

NARRATIVE: CASE EVENT DATE: 20230817
